FAERS Safety Report 5323589-7 (Version None)
Quarter: 2007Q2

REPORT INFORMATION
  Report Type: 
  Country: None (occurrence: None)
  Receive Date: 20070509
  Receipt Date: 20070509
  Transmission Date: 20071010
  Serious: Yes (Life-Threatening, Hospitalization)
  Sender: FDA-Public Use
  Company Number: None

PATIENT
  Sex: Female

DRUGS (1)
  1. XYLOCAINE [Suspect]
     Indication: BREAST COSMETIC SURGERY
     Dosage: 30CC
     Dates: start: 20070424

REACTIONS (3)
  - ANAESTHETIC COMPLICATION [None]
  - HYPERTENSION [None]
  - HYPOTENSION [None]
